FAERS Safety Report 5489008-5 (Version None)
Quarter: 2007Q4

REPORT INFORMATION
  Report Type: 
  Country: None (occurrence: None)
  Receive Date: 20071016
  Receipt Date: 20071008
  Transmission Date: 20080405
  Serious: Yes (Other)
  Sender: FDA-Public Use
  Company Number: 2007SP020414

PATIENT
  Age: 52 Year
  Sex: Male
  Weight: 120.6568 kg

DRUGS (3)
  1. PEG-INTRON [Suspect]
     Indication: HEPATITIS C
     Dosage: SC
     Route: 058
     Dates: start: 20070209
  2. RIBAVIRIN [Suspect]
     Indication: HEPATITIS C
     Dosage: PO
     Route: 048
     Dates: start: 20070209
  3. PRILOSEC [Concomitant]

REACTIONS (18)
  - ALOPECIA [None]
  - CONFUSIONAL STATE [None]
  - DEHYDRATION [None]
  - DIARRHOEA [None]
  - DIZZINESS POSTURAL [None]
  - DYSGEUSIA [None]
  - FATIGUE [None]
  - IRRITABILITY [None]
  - LUNG DISORDER [None]
  - NAUSEA [None]
  - ORTHOSTATIC HYPOTENSION [None]
  - PERICARDIAL EFFUSION [None]
  - PHARYNGOLARYNGEAL PAIN [None]
  - SUNBURN [None]
  - THINKING ABNORMAL [None]
  - VOMITING [None]
  - WEIGHT DECREASED [None]
  - WHITE BLOOD CELL COUNT DECREASED [None]
